FAERS Safety Report 6235373-0 (Version None)
Quarter: 2009Q2

REPORT INFORMATION
  Report Type: 
  Country: None (occurrence: None)
  Receive Date: 20090618
  Receipt Date: 20080428
  Transmission Date: 20091009
  Serious: No
  Sender: FDA-Public Use
  Company Number: US-ASTRAZENECA-2008UW08649

PATIENT
  Age: 19 Year
  Sex: Male
  Weight: 65.3 kg

DRUGS (6)
  1. ENTOCORT EC [Suspect]
     Indication: COLITIS ULCERATIVE
     Route: 048
     Dates: end: 20080424
  2. PENTASA [Concomitant]
  3. AZASAN [Concomitant]
  4. AZASAN [Concomitant]
  5. ENBREL [Concomitant]
  6. COLAZAL [Concomitant]
     Dosage: 9/DAY

REACTIONS (5)
  - DYSPEPSIA [None]
  - HEADACHE [None]
  - MUSCLE TWITCHING [None]
  - NOCTURIA [None]
  - TREMOR [None]
